FAERS Safety Report 22237648 (Version 9)
Quarter: 2023Q4

REPORT INFORMATION
  Report Type: Other
  Country: JP (occurrence: JP)
  Receive Date: 20230421
  Receipt Date: 20231117
  Transmission Date: 20240109
  Serious: Yes (Other)
  Sender: FDA-Public Use
  Company Number: JP-CHUGAI-2023013583AA

PATIENT
  Age: 74 Year
  Sex: Female
  Weight: 47.6 kg

DRUGS (15)
  1. POLIVY [Suspect]
     Active Substance: POLATUZUMAB VEDOTIN-PIIQ
     Indication: Diffuse large B-cell lymphoma
     Route: 041
     Dates: start: 20230316, end: 20230316
  2. POLIVY [Suspect]
     Active Substance: POLATUZUMAB VEDOTIN-PIIQ
     Dosage: MOST RECENT DOSE RECEIVED ON 12/JUL/2023
     Route: 041
     Dates: start: 20230405
  3. RITUXIMAB [Concomitant]
     Active Substance: RITUXIMAB
     Indication: Diffuse large B-cell lymphoma
     Dosage: 550 MILLIGRAM, SINGLE
     Route: 041
     Dates: start: 20230315, end: 20230315
  4. RITUXIMAB [Concomitant]
     Active Substance: RITUXIMAB
     Dosage: 538 MILLIGRAM
     Route: 041
     Dates: start: 20230405, end: 20230928
  5. CYCLOPHOSPHAMIDE [Concomitant]
     Active Substance: CYCLOPHOSPHAMIDE
     Indication: Diffuse large B-cell lymphoma
     Dosage: 1100 MILLIGRAM, SINGLE
     Route: 041
     Dates: start: 20230316, end: 20230316
  6. CYCLOPHOSPHAMIDE [Concomitant]
     Active Substance: CYCLOPHOSPHAMIDE
     Dosage: 1074 MILLIGRAM
     Route: 041
     Dates: start: 20230405
  7. DOXORUBICIN HYDROCHLORIDE [Concomitant]
     Active Substance: DOXORUBICIN HYDROCHLORIDE
     Indication: Diffuse large B-cell lymphoma
     Dosage: 73 MILLIGRAM, SINGLE
     Route: 041
     Dates: start: 20230316, end: 20230316
  8. DOXORUBICIN HYDROCHLORIDE [Concomitant]
     Active Substance: DOXORUBICIN HYDROCHLORIDE
     Dosage: 71.6 MILLIGRAM
     Route: 041
     Dates: start: 20230405
  9. PREDNISOLONE [Concomitant]
     Active Substance: PREDNISOLONE
     Indication: Diffuse large B-cell lymphoma
     Dosage: 60 MILLIGRAM, QD
     Route: 048
     Dates: start: 20230315, end: 20230319
  10. PREDNISOLONE [Concomitant]
     Active Substance: PREDNISOLONE
     Dosage: 60 MILLIGRAM, QD
     Route: 048
     Dates: start: 20230405, end: 20230409
  11. PREDNISOLONE [Concomitant]
     Active Substance: PREDNISOLONE
     Dosage: 60 MILLIGRAM, QD
     Route: 048
     Dates: start: 20230510, end: 20230514
  12. PREDNISOLONE [Concomitant]
     Active Substance: PREDNISOLONE
     Dosage: 60 MILLIGRAM, QD
     Route: 048
     Dates: start: 20230531, end: 20230604
  13. PREDNISOLONE [Concomitant]
     Active Substance: PREDNISOLONE
     Dosage: 60 MILLIGRAM, QD
     Route: 048
     Dates: start: 20230621, end: 20230625
  14. PREDNISOLONE [Concomitant]
     Active Substance: PREDNISOLONE
     Dosage: 60 MILLIGRAM, QD
     Route: 048
     Dates: start: 20230712, end: 20230716
  15. APREPITANT [Concomitant]
     Active Substance: APREPITANT

REACTIONS (5)
  - Hepatic enzyme increased [Not Recovered/Not Resolved]
  - Neutropenia [Recovered/Resolved]
  - Sarcoid-like reaction [Unknown]
  - Nausea [Recovering/Resolving]
  - COVID-19 [Unknown]

NARRATIVE: CASE EVENT DATE: 20230327
